FAERS Safety Report 10066837 (Version 1)
Quarter: 2014Q2

REPORT INFORMATION
  Report Type: Report from Study
  Country: PL (occurrence: PL)
  Receive Date: 20140408
  Receipt Date: 20140408
  Transmission Date: 20141212
  Serious: Yes (Life-Threatening, Hospitalization)
  Sender: FDA-Public Use
  Company Number: PL-MYLANLABS-2014S1007530

PATIENT
  Age: 9 Year
  Sex: Male
  Weight: 45 kg

DRUGS (2)
  1. METHOTREXATE [Suspect]
     Indication: OSTEOSARCOMA
     Dosage: 11.42 G/METRE.SQR
     Route: 042
  2. METHOTREXATE [Suspect]
     Indication: OFF LABEL USE
     Dosage: 11.42 G/METRE.SQR
     Route: 042

REACTIONS (2)
  - Multi-organ failure [Recovering/Resolving]
  - Toxicity to various agents [Recovering/Resolving]
